FAERS Safety Report 17580629 (Version 1)
Quarter: 2020Q1

REPORT INFORMATION
  Report Type: Spontaneous
  Country: BE (occurrence: BE)
  Receive Date: 20200325
  Receipt Date: 20200325
  Transmission Date: 20200409
  Serious: Yes (Life-Threatening, Hospitalization)
  Sender: FDA-Public Use
  Company Number: BE-MYLANLABS-2020M1030301

PATIENT
  Age: 77 Year
  Sex: Female

DRUGS (1)
  1. TRAZODONE [Suspect]
     Active Substance: TRAZODONE HYDROCHLORIDE
     Indication: DEPRESSION
     Dosage: OVERDOSE, MAXIMAL INGESTED DOSE, 4500 MG
     Route: 048

REACTIONS (7)
  - Coma [Recovering/Resolving]
  - Overdose [Recovered/Resolved]
  - Loss of consciousness [Recovered/Resolved]
  - Sinus bradycardia [Unknown]
  - Electrocardiogram QT prolonged [Recovered/Resolved]
  - Blood glucose increased [Unknown]
  - Coma scale abnormal [Recovering/Resolving]
